FAERS Safety Report 10409060 (Version 2)
Quarter: 2014Q3

REPORT INFORMATION
  Report Type: Report from Study
  Country: FI (occurrence: FI)
  Receive Date: 20140826
  Receipt Date: 20140826
  Transmission Date: 20150326
  Serious: Yes (Hospitalization, Other)
  Sender: FDA-Public Use
  Company Number: PHHY2014FI066907

PATIENT
  Age: 15 Year
  Sex: Female

DRUGS (9)
  1. LEPONEX [Suspect]
     Active Substance: CLOZAPINE
     Indication: OFF LABEL USE
     Dosage: 400 MG, PER DAY (100 PLUS 300 MG PER DAY, 1 PLUS 3 TABLETS)
     Dates: end: 20140528
  2. LAMICTAL [Concomitant]
     Active Substance: LAMOTRIGINE
     Dosage: 300 MG, (1 PLUS 2 TABLETS DAILY)
  3. MINISUN [Concomitant]
     Dosage: 20 UG, QD (ONCE DAILY)
  4. TEMAZEPAM. [Concomitant]
     Active Substance: TEMAZEPAM
     Dosage: UKN, PRN
  5. LEPONEX [Suspect]
     Active Substance: CLOZAPINE
     Indication: SCHIZOPHRENIA, DISORGANISED TYPE
     Dosage: UNK
     Dates: start: 20111129
  6. LAMICTAL [Concomitant]
     Active Substance: LAMOTRIGINE
     Dosage: 300 MG, (1 PLUS 2 TABLETS DAILY)
  7. ATROVENT [Concomitant]
     Active Substance: IPRATROPIUM BROMIDE
     Dosage: UNK
  8. LAMICTAL [Concomitant]
     Active Substance: LAMOTRIGINE
     Indication: SCHIZOPHRENIA, DISORGANISED TYPE
     Dosage: UNK (INCREASING DOSES)
     Dates: start: 20120627
  9. LAMICTAL [Concomitant]
     Active Substance: LAMOTRIGINE
     Dosage: 200 MG, DAILY

REACTIONS (4)
  - Tachycardia [Not Recovered/Not Resolved]
  - Mental impairment [Unknown]
  - Neutropenia [Recovered/Resolved]
  - Off label use [Recovered/Resolved]

NARRATIVE: CASE EVENT DATE: 20111129
